FAERS Safety Report 22321316 (Version 1)
Quarter: 2023Q2

REPORT INFORMATION
  Report Type: Spontaneous
  Country: US (occurrence: US)
  Receive Date: 20230515
  Receipt Date: 20230515
  Transmission Date: 20230721
  Serious: Yes (Hospitalization, Other)
  Sender: FDA-Public Use
  Company Number: US-JNJFOC-20230518390

PATIENT
  Sex: Female

DRUGS (1)
  1. THROMBIN HUMAN [Suspect]
     Active Substance: THROMBIN HUMAN
     Indication: Therapeutic procedure
     Route: 065

REACTIONS (2)
  - Pelvic abscess [Unknown]
  - Abscess [Unknown]

NARRATIVE: CASE EVENT DATE: 20221115
